FAERS Safety Report 9055421 (Version 1)
Quarter: 2013Q1

REPORT INFORMATION
  Report Type: Spontaneous
  Country: JP (occurrence: JP)
  Receive Date: 20130206
  Receipt Date: 20130206
  Transmission Date: 20140127
  Serious: Yes (Death)
  Sender: FDA-Public Use
  Company Number: JP-OTSUKA-JP-2012-13211

PATIENT
  Sex: Male

DRUGS (3)
  1. PLETAAL [Suspect]
     Route: 048
  2. TAKEPRON [Concomitant]
     Route: 048
  3. DIOVAN [Concomitant]
     Route: 048

REACTIONS (1)
  - Interstitial lung disease [Fatal]
